FAERS Safety Report 6248166-5 (Version None)
Quarter: 2009Q2

REPORT INFORMATION
  Report Type: 
  Country: None (occurrence: None)
  Receive Date: 20090624
  Receipt Date: 20090624
  Transmission Date: 20091009
  Serious: Yes (Disabling)
  Sender: FDA-Public Use
  Company Number: None

PATIENT
  Sex: Male
  Weight: 86.1834 kg

DRUGS (1)
  1. TREANDA [Suspect]
     Dosage: 100 OR 120 MG/SQ/M 2X/MO
     Route: 042
     Dates: start: 20080901, end: 20090301

REACTIONS (2)
  - PRODUCT LABEL ISSUE [None]
  - VEIN DISORDER [None]
